FAERS Safety Report 16434080 (Version 1)
Quarter: 2019Q2

REPORT INFORMATION
  Report Type: Spontaneous
  Country: US (occurrence: US)
  Receive Date: 20190614
  Receipt Date: 20190614
  Transmission Date: 20190711
  Serious: Yes (Other)
  Sender: FDA-Public Use
  Company Number: US-JNJFOC-20190302145

PATIENT
  Sex: Male

DRUGS (3)
  1. CYTARABINE. [Suspect]
     Active Substance: CYTARABINE
     Indication: HISTIOCYTIC SARCOMA
     Route: 065
  2. CLADRIBINE. [Suspect]
     Active Substance: CLADRIBINE
     Indication: HISTIOCYTIC SARCOMA
     Route: 065
  3. MITOXANTRONE [Suspect]
     Active Substance: MITOXANTRONE HYDROCHLORIDE
     Indication: HISTIOCYTIC SARCOMA
     Route: 065

REACTIONS (3)
  - Bone marrow disorder [Unknown]
  - Product use in unapproved indication [Unknown]
  - Off label use [Unknown]
